FAERS Safety Report 10995591 (Version 1)
Quarter: 2015Q2

REPORT INFORMATION
  Report Type: Spontaneous
  Country: FR (occurrence: FR)
  Receive Date: 20150407
  Receipt Date: 20150407
  Transmission Date: 20150821
  Serious: Yes (Hospitalization)
  Sender: FDA-Public Use
  Company Number: PHHY2015FR038402

PATIENT
  Age: 19 Year
  Sex: Female

DRUGS (3)
  1. TRAMADOL [Concomitant]
     Active Substance: TRAMADOL
     Indication: PRODUCT USED FOR UNKNOWN INDICATION
     Route: 065
  2. RIMACTAN [Suspect]
     Active Substance: RIFAMPIN
     Indication: SACROILIITIS
     Dosage: 1500 MG, QD
     Route: 048
     Dates: start: 20150121, end: 20150212
  3. OFLOXCIN [Concomitant]
     Indication: SACROILIITIS
     Route: 048
     Dates: start: 20150121

REACTIONS (1)
  - Hepatocellular injury [Recovered/Resolved]

NARRATIVE: CASE EVENT DATE: 20150127
